FAERS Safety Report 8620120-5 (Version None)
Quarter: 2012Q3

REPORT INFORMATION
  Report Type: 
  Country: None (occurrence: None)
  Receive Date: 20120816
  Receipt Date: 20120816
  Transmission Date: 20120928
  Serious: Yes (Other)
  Sender: FDA-Public Use
  Company Number: None

PATIENT
  Age: 46 Year
  Sex: Female
  Weight: 111 kg

DRUGS (1)
  1. ACYCLOVIR [Suspect]
     Indication: HERPES ZOSTER
     Dosage: 1100 MG, Q8H, IV BOLUS
     Route: 040
     Dates: start: 20111226, end: 20111227

REACTIONS (2)
  - RENAL FAILURE ACUTE [None]
  - DRUG PRESCRIBING ERROR [None]
